FAERS Safety Report 5253847-6 (Version None)
Quarter: 2007Q1

REPORT INFORMATION
  Report Type: 
  Country: None (occurrence: None)
  Receive Date: 20070227
  Receipt Date: 20070212
  Transmission Date: 20070707
  Serious: Yes (Other)
  Sender: FDA-Public Use
  Company Number: 225777

PATIENT
  Age: 71 Year
  Sex: Male

DRUGS (2)
  1. AVASTIN [Suspect]
     Indication: DRUG USE FOR UNKNOWN INDICATION
     Dosage: 1 MG, UNK, INTRAVITREAL
  2. GENTAMICIN [Concomitant]

REACTIONS (6)
  - CORNEAL OEDEMA [None]
  - CORNEAL STRIAE [None]
  - EYE INFLAMMATION [None]
  - EYE PAIN [None]
  - PAIN [None]
  - PHARMACEUTICAL PRODUCT COMPLAINT [None]
